FAERS Safety Report 8594478-X (Version None)
Quarter: 2012Q3

REPORT INFORMATION
  Report Type: 
  Country: None (occurrence: None)
  Receive Date: 20120801
  Receipt Date: 20120717
  Transmission Date: 20120928
  Serious: Yes (Other)
  Sender: FDA-Public Use
  Company Number: FK201202088

PATIENT
  Age: 39 Year
  Sex: Female

DRUGS (1)
  1. CISPLATIN [Suspect]
     Indication: METASTASES TO CENTRAL NERVOUS SYSTEM

REACTIONS (4)
  - NECK PAIN [None]
  - CONDITION AGGRAVATED [None]
  - NEURALGIA [None]
  - EAR PAIN [None]
